FAERS Safety Report 17667062 (Version 38)
Quarter: 2025Q2

REPORT INFORMATION
  Report Type: Spontaneous
  Country: CA (occurrence: CA)
  Receive Date: 20200414
  Receipt Date: 20250414
  Transmission Date: 20250716
  Serious: Yes (Hospitalization, Other)
  Sender: ALEXION PHARMACEUTICALS
  Company Number: 2020SE49789

PATIENT
  Age: 78 Year
  Weight: 93 kg

DRUGS (417)
  1. SYMBICORT [Suspect]
     Active Substance: BUDESONIDE\FORMOTEROL FUMARATE DIHYDRATE
     Dosage: 2 DOSAGE FORM, TWO TIMES A DAY
  2. SYMBICORT [Suspect]
     Active Substance: BUDESONIDE\FORMOTEROL FUMARATE DIHYDRATE
     Dosage: 2 DOSAGE FORM, TWO TIMES A DAY
  3. SYMBICORT [Suspect]
     Active Substance: BUDESONIDE\FORMOTEROL FUMARATE DIHYDRATE
     Dosage: 2 DOSAGE FORM, TWO TIMES A DAY
  4. FLUMIST [Suspect]
     Active Substance: INFLUENZA A VIRUS A/CALIFORNIA/7/2009 (H1N1) LIVE(ATTENUATED) ANTIGEN\INFLUENZA A VIRUS A/PERTH/16/2
  5. BUDESONIDE [Suspect]
     Active Substance: BUDESONIDE
     Indication: Product used for unknown indication
  6. BUDESONIDE [Suspect]
     Active Substance: BUDESONIDE
  7. BUDESONIDE [Suspect]
     Active Substance: BUDESONIDE
  8. BUDESONIDE [Suspect]
     Active Substance: BUDESONIDE
  9. BUDESONIDE [Suspect]
     Active Substance: BUDESONIDE
  10. BUDESONIDE [Suspect]
     Active Substance: BUDESONIDE
  11. BUDESONIDE [Suspect]
     Active Substance: BUDESONIDE
     Indication: Product used for unknown indication
  12. BUDESONIDE [Suspect]
     Active Substance: BUDESONIDE
     Indication: Product used for unknown indication
  13. BUDESONIDE [Suspect]
     Active Substance: BUDESONIDE
     Indication: Product used for unknown indication
  14. BUDESONIDE [Suspect]
     Active Substance: BUDESONIDE
     Indication: Product used for unknown indication
  15. BUDESONIDE [Suspect]
     Active Substance: BUDESONIDE
     Indication: Product used for unknown indication
  16. FORMOTEROL FUMARATE [Suspect]
     Active Substance: FORMOTEROL FUMARATE
     Indication: Asthma
  17. FORMOTEROL FUMARATE [Suspect]
     Active Substance: FORMOTEROL FUMARATE
  18. FORMOTEROL FUMARATE [Suspect]
     Active Substance: FORMOTEROL FUMARATE
  19. FORMOTEROL FUMARATE [Suspect]
     Active Substance: FORMOTEROL FUMARATE
  20. FORMOTEROL FUMARATE [Suspect]
     Active Substance: FORMOTEROL FUMARATE
     Indication: Asthma
  21. FORMOTEROL FUMARATE [Suspect]
     Active Substance: FORMOTEROL FUMARATE
     Indication: Product used for unknown indication
  22. FORMOTEROL FUMARATE [Suspect]
     Active Substance: FORMOTEROL FUMARATE
     Indication: Product used for unknown indication
  23. FORMOTEROL FUMARATE [Suspect]
     Active Substance: FORMOTEROL FUMARATE
     Indication: Product used for unknown indication
  24. FORMOTEROL FUMARATE [Suspect]
     Active Substance: FORMOTEROL FUMARATE
     Indication: Product used for unknown indication
  25. FORMOTEROL FUMARATE [Suspect]
     Active Substance: FORMOTEROL FUMARATE
     Indication: Product used for unknown indication
  26. CANDESARTAN [Suspect]
     Active Substance: CANDESARTAN
     Indication: Product used for unknown indication
  27. CANDESARTAN [Suspect]
     Active Substance: CANDESARTAN
     Indication: Product used for unknown indication
  28. CANDESARTAN [Suspect]
     Active Substance: CANDESARTAN
     Indication: Product used for unknown indication
  29. CANDESARTAN [Suspect]
     Active Substance: CANDESARTAN
     Indication: Product used for unknown indication
  30. CANDESARTAN [Suspect]
     Active Substance: CANDESARTAN
     Indication: Product used for unknown indication
  31. CANDESARTAN CILEXETIL [Suspect]
     Active Substance: CANDESARTAN CILEXETIL
     Dosage: 8 MILLIGRAM, QD
  32. CANDESARTAN CILEXETIL [Suspect]
     Active Substance: CANDESARTAN CILEXETIL
     Dosage: 8 MILLIGRAM, QD
  33. CANDESARTAN CILEXETIL [Suspect]
     Active Substance: CANDESARTAN CILEXETIL
  34. GLYCOPYRRONIUM [Suspect]
     Active Substance: GLYCOPYRRONIUM
  35. INFLUENZA VIRUS VACCINE [Suspect]
     Active Substance: INFLUENZA VIRUS VACCINE
  36. INFLUENZA VIRUS VACCINE [Suspect]
     Active Substance: INFLUENZA VIRUS VACCINE
  37. INFLUENZA VIRUS VACCINE [Suspect]
     Active Substance: INFLUENZA VIRUS VACCINE
  38. INFLUENZA VIRUS VACCINE [Suspect]
     Active Substance: INFLUENZA VIRUS VACCINE
  39. INFLUENZA VIRUS VACCINE [Suspect]
     Active Substance: INFLUENZA VIRUS VACCINE
  40. INFLUENZA VIRUS VACCINE [Suspect]
     Active Substance: INFLUENZA VIRUS VACCINE
  41. INFLUENZA VIRUS VACCINE [Suspect]
     Active Substance: INFLUENZA VIRUS VACCINE
  42. INFLUENZA VIRUS VACCINE [Suspect]
     Active Substance: INFLUENZA VIRUS VACCINE
  43. INFLUENZA VIRUS VACCINE [Suspect]
     Active Substance: INFLUENZA VIRUS VACCINE
  44. INFLUENZA VIRUS VACCINE [Suspect]
     Active Substance: INFLUENZA VIRUS VACCINE
  45. INFLUENZA VIRUS VACCINE [Suspect]
     Active Substance: INFLUENZA VIRUS VACCINE
  46. INFLUENZA VIRUS VACCINE [Suspect]
     Active Substance: INFLUENZA VIRUS VACCINE
  47. INFLUENZA VIRUS VACCINE [Suspect]
     Active Substance: INFLUENZA VIRUS VACCINE
  48. QUETIAPINE [Suspect]
     Active Substance: QUETIAPINE
     Indication: Product used for unknown indication
  49. QUETIAPINE [Suspect]
     Active Substance: QUETIAPINE
  50. QUETIAPINE [Suspect]
     Active Substance: QUETIAPINE
  51. QUETIAPINE [Suspect]
     Active Substance: QUETIAPINE
  52. QUETIAPINE [Suspect]
     Active Substance: QUETIAPINE
  53. QUETIAPINE [Suspect]
     Active Substance: QUETIAPINE
  54. QUETIAPINE FUMARATE [Suspect]
     Active Substance: QUETIAPINE FUMARATE
     Indication: Product used for unknown indication
  55. QUETIAPINE FUMARATE [Suspect]
     Active Substance: QUETIAPINE FUMARATE
  56. QUETIAPINE FUMARATE [Suspect]
     Active Substance: QUETIAPINE FUMARATE
  57. QUETIAPINE FUMARATE [Suspect]
     Active Substance: QUETIAPINE FUMARATE
  58. QUETIAPINE FUMARATE [Suspect]
     Active Substance: QUETIAPINE FUMARATE
     Indication: Product used for unknown indication
  59. ROSUVASTATIN [Suspect]
     Active Substance: ROSUVASTATIN
     Indication: Product used for unknown indication
  60. ROSUVASTATIN [Suspect]
     Active Substance: ROSUVASTATIN
  61. ROSUVASTATIN [Suspect]
     Active Substance: ROSUVASTATIN
  62. ROSUVASTATIN [Suspect]
     Active Substance: ROSUVASTATIN
     Indication: Product used for unknown indication
  63. ROSUVASTATIN CALCIUM [Suspect]
     Active Substance: ROSUVASTATIN CALCIUM
     Indication: Product used for unknown indication
  64. ROSUVASTATIN CALCIUM [Suspect]
     Active Substance: ROSUVASTATIN CALCIUM
     Indication: Product used for unknown indication
  65. ROSUVASTATIN CALCIUM [Suspect]
     Active Substance: ROSUVASTATIN CALCIUM
  66. ROSUVASTATIN CALCIUM [Suspect]
     Active Substance: ROSUVASTATIN CALCIUM
  67. ROSUVASTATIN CALCIUM [Suspect]
     Active Substance: ROSUVASTATIN CALCIUM
  68. INFLUENZA VIRUS VACCINE [Suspect]
     Active Substance: INFLUENZA VIRUS VACCINE
  69. AZITHROMYCIN [Suspect]
     Active Substance: AZITHROMYCIN
     Indication: Product used for unknown indication
  70. AZITHROMYCIN [Suspect]
     Active Substance: AZITHROMYCIN
  71. AZITHROMYCIN [Suspect]
     Active Substance: AZITHROMYCIN
  72. DEXILANT [Suspect]
     Active Substance: DEXLANSOPRAZOLE
     Indication: Product used for unknown indication
     Route: 065
  73. DEXILANT [Suspect]
     Active Substance: DEXLANSOPRAZOLE
     Route: 065
  74. DOMPERIDONE [Suspect]
     Active Substance: DOMPERIDONE
     Indication: Product used for unknown indication
     Route: 065
  75. DOMPERIDONE [Suspect]
     Active Substance: DOMPERIDONE
  76. DOMPERIDONE [Suspect]
     Active Substance: DOMPERIDONE
  77. EFINACONAZOLE [Suspect]
     Active Substance: EFINACONAZOLE
     Indication: Product used for unknown indication
     Route: 065
  78. EFINACONAZOLE [Suspect]
     Active Substance: EFINACONAZOLE
  79. EFINACONAZOLE [Suspect]
     Active Substance: EFINACONAZOLE
  80. NITROGLYCERIN [Suspect]
     Active Substance: NITROGLYCERIN
     Indication: Product used for unknown indication
     Route: 065
  81. NITROGLYCERIN [Suspect]
     Active Substance: NITROGLYCERIN
     Route: 065
  82. NITROGLYCERIN [Suspect]
     Active Substance: NITROGLYCERIN
     Route: 065
  83. NITROGLYCERIN [Suspect]
     Active Substance: NITROGLYCERIN
  84. NITROGLYCERIN [Suspect]
     Active Substance: NITROGLYCERIN
  85. ATROVENT [Suspect]
     Active Substance: IPRATROPIUM BROMIDE
     Indication: Product used for unknown indication
     Route: 065
  86. ATROVENT [Suspect]
     Active Substance: IPRATROPIUM BROMIDE
     Route: 065
  87. ATROVENT [Suspect]
     Active Substance: IPRATROPIUM BROMIDE
  88. ATROVENT [Suspect]
     Active Substance: IPRATROPIUM BROMIDE
  89. ATROVENT [Suspect]
     Active Substance: IPRATROPIUM BROMIDE
  90. ATROVENT [Suspect]
     Active Substance: IPRATROPIUM BROMIDE
  91. LANSOPRAZOLE [Suspect]
     Active Substance: LANSOPRAZOLE
     Indication: Product used for unknown indication
     Route: 065
  92. LANSOPRAZOLE [Suspect]
     Active Substance: LANSOPRAZOLE
     Indication: Gastrooesophageal reflux disease
     Route: 065
  93. LEVOTHYROXINE SODIUM [Suspect]
     Active Substance: LEVOTHYROXINE SODIUM
     Indication: Product used for unknown indication
     Route: 065
  94. LEVOTHYROXINE SODIUM [Suspect]
     Active Substance: LEVOTHYROXINE SODIUM
  95. LEVOTHYROXINE SODIUM [Suspect]
     Active Substance: LEVOTHYROXINE SODIUM
  96. SYNTHROID [Suspect]
     Active Substance: LEVOTHYROXINE SODIUM
     Indication: Product used for unknown indication
     Route: 065
  97. SYNTHROID [Suspect]
     Active Substance: LEVOTHYROXINE SODIUM
     Route: 065
  98. SYNTHROID [Suspect]
     Active Substance: LEVOTHYROXINE SODIUM
  99. MEPOLIZUMAB [Suspect]
     Active Substance: MEPOLIZUMAB
     Indication: Asthma
     Dosage: 100 MG
  100. MEPOLIZUMAB [Suspect]
     Active Substance: MEPOLIZUMAB
     Indication: Product used for unknown indication
  101. MEPOLIZUMAB [Suspect]
     Active Substance: MEPOLIZUMAB
  102. MEPOLIZUMAB [Suspect]
     Active Substance: MEPOLIZUMAB
  103. MEPOLIZUMAB [Suspect]
     Active Substance: MEPOLIZUMAB
  104. MEPOLIZUMAB [Suspect]
     Active Substance: MEPOLIZUMAB
  105. MEPOLIZUMAB [Suspect]
     Active Substance: MEPOLIZUMAB
  106. MEPOLIZUMAB [Suspect]
     Active Substance: MEPOLIZUMAB
  107. MEPOLIZUMAB [Suspect]
     Active Substance: MEPOLIZUMAB
     Route: 065
  108. MEPOLIZUMAB [Suspect]
     Active Substance: MEPOLIZUMAB
     Route: 065
  109. MEPOLIZUMAB [Suspect]
     Active Substance: MEPOLIZUMAB
  110. NASONEX [Suspect]
     Active Substance: MOMETASONE FUROATE
     Indication: Product used for unknown indication
     Dosage: UNK 50UG PER SPRAY 2 SPRAY IN EACH NOTRIL BID 2 DF
     Route: 065
  111. NASONEX [Suspect]
     Active Substance: MOMETASONE FUROATE
     Indication: Asthma
  112. NASONEX [Suspect]
     Active Substance: MOMETASONE FUROATE
     Dosage: UNK 50UG PER SPRAY 2 SPRAY IN EACH NOTRIL BID 2 DF
     Route: 065
  113. NASONEX [Suspect]
     Active Substance: MOMETASONE FUROATE
  114. NASONEX [Suspect]
     Active Substance: MOMETASONE FUROATE
  115. NASONEX [Suspect]
     Active Substance: MOMETASONE FUROATE
  116. NASONEX [Suspect]
     Active Substance: MOMETASONE FUROATE
  117. NASONEX [Suspect]
     Active Substance: MOMETASONE FUROATE
  118. MONTELUKAST [Suspect]
     Active Substance: MONTELUKAST
     Indication: Product used for unknown indication
     Dosage: 10 MG
  119. MONTELUKAST [Suspect]
     Active Substance: MONTELUKAST
     Indication: Asthma
     Dosage: MONTELUKAST SODIUM 10 MG
  120. MONTELUKAST [Suspect]
     Active Substance: MONTELUKAST
     Dosage: 10 MG
  121. MONTELUKAST [Suspect]
     Active Substance: MONTELUKAST
     Dosage: 10 MILLIGRAM, QD
  122. MONTELUKAST [Suspect]
     Active Substance: MONTELUKAST
     Dosage: 10 MILLIGRAM, QD
  123. MONTELUKAST [Suspect]
     Active Substance: MONTELUKAST
  124. MONTELUKAST [Suspect]
     Active Substance: MONTELUKAST
  125. SINGULAIR [Suspect]
     Active Substance: MONTELUKAST SODIUM
     Indication: Product used for unknown indication
     Dosage: 100 MG
  126. SINGULAIR [Suspect]
     Active Substance: MONTELUKAST SODIUM
     Indication: Asthma
     Dosage: 100 MG
     Route: 065
  127. SINGULAIR [Suspect]
     Active Substance: MONTELUKAST SODIUM
     Dosage: 100 MG
     Route: 065
  128. SINGULAIR [Suspect]
     Active Substance: MONTELUKAST SODIUM
     Dosage: 100 MG
  129. SINGULAIR [Suspect]
     Active Substance: MONTELUKAST SODIUM
  130. SINGULAIR [Suspect]
     Active Substance: MONTELUKAST SODIUM
     Dosage: 100 MILLIGRAM, QD
  131. SINGULAIR [Suspect]
     Active Substance: MONTELUKAST SODIUM
  132. SINGULAIR [Suspect]
     Active Substance: MONTELUKAST SODIUM
  133. MORPHINE SULFATE [Suspect]
     Active Substance: MORPHINE SULFATE
     Indication: Product used for unknown indication
  134. MORPHINE SULFATE [Suspect]
     Active Substance: MORPHINE SULFATE
     Indication: Dyspnoea
     Route: 065
  135. MORPHINE SULFATE [Suspect]
     Active Substance: MORPHINE SULFATE
  136. MORPHINE SULFATE [Suspect]
     Active Substance: MORPHINE SULFATE
  137. MORPHINE SULFATE [Suspect]
     Active Substance: MORPHINE SULFATE
  138. MORPHINE SULFATE [Suspect]
     Active Substance: MORPHINE SULFATE
  139. MORPHINE SULFATE [Suspect]
     Active Substance: MORPHINE SULFATE
  140. MORPHINE SULFATE [Suspect]
     Active Substance: MORPHINE SULFATE
     Route: 065
  141. MORPHINE SULFATE [Suspect]
     Active Substance: MORPHINE SULFATE
     Route: 065
  142. MORPHINE SULFATE [Suspect]
     Active Substance: MORPHINE SULFATE
     Route: 065
  143. MORPHINE SULFATE [Suspect]
     Active Substance: MORPHINE SULFATE
  144. MORPHINE SULFATE [Suspect]
     Active Substance: MORPHINE SULFATE
  145. MORPHINE SULFATE [Suspect]
     Active Substance: MORPHINE SULFATE
  146. MORPHINE SULFATE [Suspect]
     Active Substance: MORPHINE SULFATE
  147. MORPHINE SULFATE [Suspect]
     Active Substance: MORPHINE SULFATE
  148. MORPHINE SULFATE [Suspect]
     Active Substance: MORPHINE SULFATE
  149. MORPHINE SULFATE [Suspect]
     Active Substance: MORPHINE SULFATE
  150. MORPHINE SULFATE [Suspect]
     Active Substance: MORPHINE SULFATE
  151. MORPHINE SULFATE [Suspect]
     Active Substance: MORPHINE SULFATE
  152. MORPHINE SULFATE [Suspect]
     Active Substance: MORPHINE SULFATE
  153. MORPHINE SULFATE [Suspect]
     Active Substance: MORPHINE SULFATE
     Dosage: 10 MILLIGRAM, QD
  154. SIMVASTATIN [Suspect]
     Active Substance: SIMVASTATIN
     Indication: Product used for unknown indication
  155. XOLAIR [Suspect]
     Active Substance: OMALIZUMAB
     Indication: Product used for unknown indication
     Route: 065
  156. XOLAIR [Suspect]
     Active Substance: OMALIZUMAB
     Route: 065
  157. XOLAIR [Suspect]
     Active Substance: OMALIZUMAB
     Route: 065
  158. XOLAIR [Suspect]
     Active Substance: OMALIZUMAB
  159. PANTOPRAZOLE SODIUM [Suspect]
     Active Substance: PANTOPRAZOLE SODIUM
     Indication: Product used for unknown indication
  160. PANTOPRAZOLE SODIUM [Suspect]
     Active Substance: PANTOPRAZOLE SODIUM
     Route: 065
  161. ACETAMINOPHEN [Suspect]
     Active Substance: ACETAMINOPHEN
     Indication: Product used for unknown indication
  162. ACETAMINOPHEN [Suspect]
     Active Substance: ACETAMINOPHEN
  163. ACETAMINOPHEN [Suspect]
     Active Substance: ACETAMINOPHEN
  164. ACETAMINOPHEN [Suspect]
     Active Substance: ACETAMINOPHEN
  165. ACETAMINOPHEN [Suspect]
     Active Substance: ACETAMINOPHEN
  166. ACETAMINOPHEN [Suspect]
     Active Substance: ACETAMINOPHEN
  167. PREVNAR [Suspect]
     Active Substance: PNEUMOCOCCAL 7-VALENT CONJUGATE VACCINE (DIPHTHERIA CRM197 PROTEIN)
     Indication: Immunisation
     Route: 065
  168. PREVNAR [Suspect]
     Active Substance: PNEUMOCOCCAL 7-VALENT CONJUGATE VACCINE (DIPHTHERIA CRM197 PROTEIN)
     Route: 065
  169. PREVNAR [Suspect]
     Active Substance: PNEUMOCOCCAL 7-VALENT CONJUGATE VACCINE (DIPHTHERIA CRM197 PROTEIN)
  170. PRAMIPEXOLE [Suspect]
     Active Substance: PRAMIPEXOLE
     Indication: Product used for unknown indication
  171. PRAMIPEXOLE [Suspect]
     Active Substance: PRAMIPEXOLE
  172. PRAMIPEXOLE [Suspect]
     Active Substance: PRAMIPEXOLE
  173. PRAMIPEXOLE [Suspect]
     Active Substance: PRAMIPEXOLE
  174. PRAMIPEXOLE [Suspect]
     Active Substance: PRAMIPEXOLE
  175. PRAMIPEXOLE [Suspect]
     Active Substance: PRAMIPEXOLE
  176. PRAMIPEXOLE [Suspect]
     Active Substance: PRAMIPEXOLE
  177. PRAMIPEXOLE [Suspect]
     Active Substance: PRAMIPEXOLE
  178. PRAMIPEXOLE [Suspect]
     Active Substance: PRAMIPEXOLE
  179. PRAMIPEXOLE [Suspect]
     Active Substance: PRAMIPEXOLE
  180. PREGABALIN [Suspect]
     Active Substance: PREGABALIN
     Indication: Product used for unknown indication
  181. PREGABALIN [Suspect]
     Active Substance: PREGABALIN
  182. PREGABALIN [Suspect]
     Active Substance: PREGABALIN
  183. PREGABALIN [Suspect]
     Active Substance: PREGABALIN
  184. RANITIDINE HYDROCHLORIDE [Suspect]
     Active Substance: RANITIDINE HYDROCHLORIDE
     Indication: Product used for unknown indication
  185. RANITIDINE HYDROCHLORIDE [Suspect]
     Active Substance: RANITIDINE HYDROCHLORIDE
     Indication: Influenza
     Route: 065
  186. RANITIDINE HYDROCHLORIDE [Suspect]
     Active Substance: RANITIDINE HYDROCHLORIDE
     Route: 065
  187. RANITIDINE HYDROCHLORIDE [Suspect]
     Active Substance: RANITIDINE HYDROCHLORIDE
  188. MOMETASONE FUROATE [Suspect]
     Active Substance: MOMETASONE FUROATE
     Indication: Product used for unknown indication
     Route: 065
  189. MOMETASONE FUROATE [Suspect]
     Active Substance: MOMETASONE FUROATE
     Route: 065
  190. MOMETASONE FUROATE [Suspect]
     Active Substance: MOMETASONE FUROATE
  191. MOMETASONE FUROATE [Suspect]
     Active Substance: MOMETASONE FUROATE
  192. MOMETASONE FUROATE [Suspect]
     Active Substance: MOMETASONE FUROATE
     Indication: Product used for unknown indication
  193. RISEDRONATE SODIUM [Suspect]
     Active Substance: RISEDRONATE SODIUM
     Indication: Product used for unknown indication
     Route: 065
  194. RISEDRONATE SODIUM [Suspect]
     Active Substance: RISEDRONATE SODIUM
  195. VENTOLIN [Suspect]
     Active Substance: ALBUTEROL SULFATE
     Indication: Asthma
     Route: 065
  196. VENTOLIN [Suspect]
     Active Substance: ALBUTEROL SULFATE
     Route: 065
  197. VENTOLIN [Suspect]
     Active Substance: ALBUTEROL SULFATE
  198. SENOKOT [Suspect]
     Active Substance: SENNOSIDES
     Indication: Product used for unknown indication
     Route: 065
  199. SENOKOT [Suspect]
     Active Substance: SENNOSIDES
     Indication: Constipation
     Route: 065
  200. SENOKOT [Suspect]
     Active Substance: SENNOSIDES
     Route: 065
  201. SENOKOT [Suspect]
     Active Substance: SENNOSIDES
     Route: 065
  202. SENOKOT [Suspect]
     Active Substance: SENNOSIDES
  203. SENOKOT [Suspect]
     Active Substance: SENNOSIDES
  204. SENOKOT [Suspect]
     Active Substance: SENNOSIDES
  205. SPIRIVA [Suspect]
     Active Substance: TIOTROPIUM BROMIDE MONOHYDRATE
     Indication: Product used for unknown indication
     Dosage: 1 DF
     Route: 065
  206. SPIRIVA [Suspect]
     Active Substance: TIOTROPIUM BROMIDE MONOHYDRATE
     Dosage: 1 DF
     Route: 065
  207. SPIRIVA [Suspect]
     Active Substance: TIOTROPIUM BROMIDE MONOHYDRATE
     Dosage: 1 DF
     Route: 065
  208. SPIRIVA [Suspect]
     Active Substance: TIOTROPIUM BROMIDE MONOHYDRATE
     Dosage: 1 DF
     Route: 065
  209. SPIRIVA [Suspect]
     Active Substance: TIOTROPIUM BROMIDE MONOHYDRATE
     Dosage: 1 DOSAGE FORM, QD
  210. SPIRIVA [Suspect]
     Active Substance: TIOTROPIUM BROMIDE MONOHYDRATE
  211. TRAZODONE [Suspect]
     Active Substance: TRAZODONE HYDROCHLORIDE
     Indication: Product used for unknown indication
  212. TRAZODONE [Suspect]
     Active Substance: TRAZODONE HYDROCHLORIDE
  213. TRAZODONE [Suspect]
     Active Substance: TRAZODONE HYDROCHLORIDE
  214. TRAZODONE [Suspect]
     Active Substance: TRAZODONE HYDROCHLORIDE
  215. TRAZODONE [Suspect]
     Active Substance: TRAZODONE HYDROCHLORIDE
  216. TRAZODONE [Suspect]
     Active Substance: TRAZODONE HYDROCHLORIDE
  217. TRAZODONE [Suspect]
     Active Substance: TRAZODONE HYDROCHLORIDE
  218. TRAZODONE [Suspect]
     Active Substance: TRAZODONE HYDROCHLORIDE
  219. TRAZODONE [Suspect]
     Active Substance: TRAZODONE HYDROCHLORIDE
     Dosage: 1 DOSAGE FORM, QD
  220. TRAZODONE [Suspect]
     Active Substance: TRAZODONE HYDROCHLORIDE
  221. VITAMIN D [Suspect]
     Active Substance: VITAMIN D NOS
     Indication: Product used for unknown indication
  222. VITAMIN D [Suspect]
     Active Substance: VITAMIN D NOS
  223. VITAMIN D [Suspect]
     Active Substance: VITAMIN D NOS
  224. ZOPICLONE [Suspect]
     Active Substance: ZOPICLONE
     Indication: Product used for unknown indication
  225. ZOPICLONE [Suspect]
     Active Substance: ZOPICLONE
     Route: 065
  226. SENNA LEAF [Suspect]
     Active Substance: SENNA LEAF
     Indication: Product used for unknown indication
     Route: 065
  227. SENNA LEAF [Suspect]
     Active Substance: SENNA LEAF
  228. SENNA LEAF [Suspect]
     Active Substance: SENNA LEAF
  229. PANTOPRAZOLE [Suspect]
     Active Substance: PANTOPRAZOLE
     Indication: Product used for unknown indication
     Route: 065
  230. PANTOPRAZOLE [Suspect]
     Active Substance: PANTOPRAZOLE
     Indication: Immunisation
     Route: 065
  231. PANTOPRAZOLE [Suspect]
     Active Substance: PANTOPRAZOLE
     Indication: Asthma
     Route: 065
  232. PANTOPRAZOLE [Suspect]
     Active Substance: PANTOPRAZOLE
     Route: 065
  233. PANTOPRAZOLE [Suspect]
     Active Substance: PANTOPRAZOLE
     Route: 065
  234. PANTOPRAZOLE [Suspect]
     Active Substance: PANTOPRAZOLE
     Route: 065
  235. PANTOPRAZOLE [Suspect]
     Active Substance: PANTOPRAZOLE
     Route: 065
  236. PANTOPRAZOLE [Suspect]
     Active Substance: PANTOPRAZOLE
     Route: 065
  237. PANTOPRAZOLE [Suspect]
     Active Substance: PANTOPRAZOLE
     Route: 065
  238. PANTOPRAZOLE [Suspect]
     Active Substance: PANTOPRAZOLE
     Route: 065
  239. PANTOPRAZOLE [Suspect]
     Active Substance: PANTOPRAZOLE
     Route: 065
  240. PANTOPRAZOLE [Suspect]
     Active Substance: PANTOPRAZOLE
     Route: 065
  241. PANTOPRAZOLE [Suspect]
     Active Substance: PANTOPRAZOLE
     Route: 065
  242. PANTOPRAZOLE [Suspect]
     Active Substance: PANTOPRAZOLE
     Route: 065
  243. PANTOPRAZOLE [Suspect]
     Active Substance: PANTOPRAZOLE
     Route: 065
  244. PANTOPRAZOLE [Suspect]
     Active Substance: PANTOPRAZOLE
  245. PANTOPRAZOLE [Suspect]
     Active Substance: PANTOPRAZOLE
  246. PANTOPRAZOLE [Suspect]
     Active Substance: PANTOPRAZOLE
  247. PANTOPRAZOLE [Suspect]
     Active Substance: PANTOPRAZOLE
  248. PANTOPRAZOLE [Suspect]
     Active Substance: PANTOPRAZOLE
  249. PANTOPRAZOLE [Suspect]
     Active Substance: PANTOPRAZOLE
  250. PANTOPRAZOLE [Suspect]
     Active Substance: PANTOPRAZOLE
  251. PANTOPRAZOLE [Suspect]
     Active Substance: PANTOPRAZOLE
  252. PANTOPRAZOLE [Suspect]
     Active Substance: PANTOPRAZOLE
  253. PANTOPRAZOLE [Suspect]
     Active Substance: PANTOPRAZOLE
  254. PANTOPRAZOLE [Suspect]
     Active Substance: PANTOPRAZOLE
  255. PANTOPRAZOLE [Suspect]
     Active Substance: PANTOPRAZOLE
  256. PANTOPRAZOLE [Suspect]
     Active Substance: PANTOPRAZOLE
  257. PANTOPRAZOLE [Suspect]
     Active Substance: PANTOPRAZOLE
  258. PANTOPRAZOLE [Suspect]
     Active Substance: PANTOPRAZOLE
  259. PANTOPRAZOLE [Suspect]
     Active Substance: PANTOPRAZOLE
  260. PANTOPRAZOLE [Suspect]
     Active Substance: PANTOPRAZOLE
  261. PANTOPRAZOLE [Suspect]
     Active Substance: PANTOPRAZOLE
  262. PANTOPRAZOLE [Suspect]
     Active Substance: PANTOPRAZOLE
  263. PANTOPRAZOLE [Suspect]
     Active Substance: PANTOPRAZOLE
  264. PANTOPRAZOLE [Suspect]
     Active Substance: PANTOPRAZOLE
  265. PANTOPRAZOLE [Suspect]
     Active Substance: PANTOPRAZOLE
  266. PANTOPRAZOLE [Suspect]
     Active Substance: PANTOPRAZOLE
  267. PANTOPRAZOLE [Suspect]
     Active Substance: PANTOPRAZOLE
  268. PANTOPRAZOLE [Suspect]
     Active Substance: PANTOPRAZOLE
  269. PANTOPRAZOLE [Suspect]
     Active Substance: PANTOPRAZOLE
  270. PANTOPRAZOLE [Suspect]
     Active Substance: PANTOPRAZOLE
  271. PANTOPRAZOLE [Suspect]
     Active Substance: PANTOPRAZOLE
  272. PANTOPRAZOLE [Suspect]
     Active Substance: PANTOPRAZOLE
  273. PANTOPRAZOLE [Suspect]
     Active Substance: PANTOPRAZOLE
  274. TIOTROPIUM BROMIDE [Suspect]
     Active Substance: TIOTROPIUM BROMIDE
     Indication: Product used for unknown indication
     Route: 065
  275. TIOTROPIUM BROMIDE [Suspect]
     Active Substance: TIOTROPIUM BROMIDE
  276. TIOTROPIUM BROMIDE [Suspect]
     Active Substance: TIOTROPIUM BROMIDE
  277. PNEUMOCOCCAL VACCINE POLYVALENT NOS [Suspect]
     Active Substance: PNEUMOCOCCAL VACCINE, POLYVALENT
     Indication: Product used for unknown indication
     Route: 065
  278. PNEUMOCOCCAL VACCINE POLYVALENT NOS [Suspect]
     Active Substance: PNEUMOCOCCAL VACCINE, POLYVALENT
     Indication: Immunisation
  279. PNEUMOCOCCAL VACCINE POLYVALENT NOS [Suspect]
     Active Substance: PNEUMOCOCCAL VACCINE, POLYVALENT
  280. ALBUTEROL [Suspect]
     Active Substance: ALBUTEROL
     Indication: Product used for unknown indication
     Route: 065
  281. ALBUTEROL [Suspect]
     Active Substance: ALBUTEROL
  282. ALBUTEROL [Suspect]
     Active Substance: ALBUTEROL
  283. ALBUTEROL [Suspect]
     Active Substance: ALBUTEROL
  284. ALBUTEROL [Suspect]
     Active Substance: ALBUTEROL
  285. OMALIZUMAB [Suspect]
     Active Substance: OMALIZUMAB
     Indication: Product used for unknown indication
     Route: 065
  286. OMALIZUMAB [Suspect]
     Active Substance: OMALIZUMAB
     Route: 065
  287. OMALIZUMAB [Suspect]
     Active Substance: OMALIZUMAB
     Route: 065
  288. OMALIZUMAB [Suspect]
     Active Substance: OMALIZUMAB
     Route: 065
  289. OMALIZUMAB [Suspect]
     Active Substance: OMALIZUMAB
     Route: 065
  290. OMALIZUMAB [Suspect]
     Active Substance: OMALIZUMAB
     Route: 065
  291. OMALIZUMAB [Suspect]
     Active Substance: OMALIZUMAB
     Route: 065
  292. OMALIZUMAB [Suspect]
     Active Substance: OMALIZUMAB
     Route: 065
  293. OMALIZUMAB [Suspect]
     Active Substance: OMALIZUMAB
     Route: 065
  294. OMALIZUMAB [Suspect]
     Active Substance: OMALIZUMAB
     Route: 065
  295. OMALIZUMAB [Suspect]
     Active Substance: OMALIZUMAB
  296. OMALIZUMAB [Suspect]
     Active Substance: OMALIZUMAB
  297. OMALIZUMAB [Suspect]
     Active Substance: OMALIZUMAB
  298. OMALIZUMAB [Suspect]
     Active Substance: OMALIZUMAB
  299. OMALIZUMAB [Suspect]
     Active Substance: OMALIZUMAB
  300. OMALIZUMAB [Suspect]
     Active Substance: OMALIZUMAB
  301. OMALIZUMAB [Suspect]
     Active Substance: OMALIZUMAB
  302. OMALIZUMAB [Suspect]
     Active Substance: OMALIZUMAB
  303. MORPHINE HYDROCHLORIDE [Suspect]
     Active Substance: MORPHINE HYDROCHLORIDE
     Indication: Product used for unknown indication
  304. MORPHINE HYDROCHLORIDE [Suspect]
     Active Substance: MORPHINE HYDROCHLORIDE
     Route: 065
  305. MORPHINE HYDROCHLORIDE [Suspect]
     Active Substance: MORPHINE HYDROCHLORIDE
     Route: 065
  306. MORPHINE HYDROCHLORIDE [Suspect]
     Active Substance: MORPHINE HYDROCHLORIDE
     Route: 065
  307. MORPHINE HYDROCHLORIDE [Suspect]
     Active Substance: MORPHINE HYDROCHLORIDE
     Route: 065
  308. MORPHINE HYDROCHLORIDE [Suspect]
     Active Substance: MORPHINE HYDROCHLORIDE
     Route: 065
  309. MORPHINE HYDROCHLORIDE [Suspect]
     Active Substance: MORPHINE HYDROCHLORIDE
     Route: 065
  310. MORPHINE HYDROCHLORIDE [Suspect]
     Active Substance: MORPHINE HYDROCHLORIDE
     Route: 065
  311. MORPHINE HYDROCHLORIDE [Suspect]
     Active Substance: MORPHINE HYDROCHLORIDE
     Route: 065
  312. MORPHINE HYDROCHLORIDE [Suspect]
     Active Substance: MORPHINE HYDROCHLORIDE
  313. BISACODYL [Suspect]
     Active Substance: BISACODYL
     Indication: Product used for unknown indication
  314. BISACODYL [Suspect]
     Active Substance: BISACODYL
  315. BISACODYL [Suspect]
     Active Substance: BISACODYL
  316. BISACODYL [Suspect]
     Active Substance: BISACODYL
  317. BISACODYL [Suspect]
     Active Substance: BISACODYL
  318. BISACODYL [Suspect]
     Active Substance: BISACODYL
  319. PREVACID [Suspect]
     Active Substance: LANSOPRAZOLE
     Indication: Product used for unknown indication
  320. PREVACID [Suspect]
     Active Substance: LANSOPRAZOLE
  321. PYRILAMINE MALEATE [Suspect]
     Active Substance: PYRILAMINE MALEATE
     Indication: Product used for unknown indication
  322. PYRILAMINE MALEATE [Suspect]
     Active Substance: PYRILAMINE MALEATE
  323. PYRILAMINE MALEATE [Suspect]
     Active Substance: PYRILAMINE MALEATE
  324. PYRILAMINE MALEATE [Suspect]
     Active Substance: PYRILAMINE MALEATE
  325. PYRILAMINE MALEATE [Suspect]
     Active Substance: PYRILAMINE MALEATE
  326. PYRILAMINE MALEATE [Suspect]
     Active Substance: PYRILAMINE MALEATE
  327. MEPYRAMINE MALEATE [Suspect]
     Active Substance: PYRILAMINE MALEATE
     Indication: Product used for unknown indication
     Route: 065
  328. MEPYRAMINE MALEATE [Suspect]
     Active Substance: PYRILAMINE MALEATE
  329. MEPYRAMINE MALEATE [Suspect]
     Active Substance: PYRILAMINE MALEATE
  330. NITROGLYCERIN [Suspect]
     Active Substance: NITROGLYCERIN
     Indication: Product used for unknown indication
     Route: 065
  331. NITROGLYCERIN [Suspect]
     Active Substance: NITROGLYCERIN
     Route: 065
  332. NITROGLYCERIN [Suspect]
     Active Substance: NITROGLYCERIN
     Route: 065
  333. NITROGLYCERIN [Suspect]
     Active Substance: NITROGLYCERIN
  334. NITROGLYCERIN [Suspect]
     Active Substance: NITROGLYCERIN
  335. NITROGLYCERIN [Suspect]
     Active Substance: NITROGLYCERIN
  336. PANTOPRAZOLE SODIUM [Suspect]
     Active Substance: PANTOPRAZOLE SODIUM
     Indication: Product used for unknown indication
  337. PANTOPRAZOLE SODIUM [Suspect]
     Active Substance: PANTOPRAZOLE SODIUM
     Indication: Immunisation
  338. PANTOPRAZOLE SODIUM [Suspect]
     Active Substance: PANTOPRAZOLE SODIUM
     Indication: Asthma
  339. PANTOPRAZOLE SODIUM [Suspect]
     Active Substance: PANTOPRAZOLE SODIUM
  340. PANTOPRAZOLE SODIUM [Suspect]
     Active Substance: PANTOPRAZOLE SODIUM
  341. PANTOPRAZOLE SODIUM [Suspect]
     Active Substance: PANTOPRAZOLE SODIUM
  342. PANTOPRAZOLE SODIUM [Suspect]
     Active Substance: PANTOPRAZOLE SODIUM
  343. PANTOPRAZOLE SODIUM [Suspect]
     Active Substance: PANTOPRAZOLE SODIUM
  344. PANTOPRAZOLE SODIUM [Suspect]
     Active Substance: PANTOPRAZOLE SODIUM
  345. PANTOPRAZOLE SODIUM [Suspect]
     Active Substance: PANTOPRAZOLE SODIUM
  346. PANTOPRAZOLE SODIUM [Suspect]
     Active Substance: PANTOPRAZOLE SODIUM
  347. PANTOPRAZOLE SODIUM [Suspect]
     Active Substance: PANTOPRAZOLE SODIUM
  348. PANTOPRAZOLE SODIUM [Suspect]
     Active Substance: PANTOPRAZOLE SODIUM
  349. PANTOPRAZOLE SODIUM [Suspect]
     Active Substance: PANTOPRAZOLE SODIUM
  350. PANTOPRAZOLE SODIUM [Suspect]
     Active Substance: PANTOPRAZOLE SODIUM
  351. PANTOPRAZOLE SODIUM [Suspect]
     Active Substance: PANTOPRAZOLE SODIUM
  352. PANTOPRAZOLE SODIUM [Suspect]
     Active Substance: PANTOPRAZOLE SODIUM
  353. PANTOPRAZOLE SODIUM [Suspect]
     Active Substance: PANTOPRAZOLE SODIUM
  354. PANTOPRAZOLE SODIUM [Suspect]
     Active Substance: PANTOPRAZOLE SODIUM
  355. PANTOPRAZOLE SODIUM [Suspect]
     Active Substance: PANTOPRAZOLE SODIUM
  356. PANTOPRAZOLE SODIUM [Suspect]
     Active Substance: PANTOPRAZOLE SODIUM
  357. PANTOPRAZOLE SODIUM [Suspect]
     Active Substance: PANTOPRAZOLE SODIUM
  358. PANTOPRAZOLE SODIUM [Suspect]
     Active Substance: PANTOPRAZOLE SODIUM
  359. PANTOPRAZOLE SODIUM [Suspect]
     Active Substance: PANTOPRAZOLE SODIUM
  360. PANTOPRAZOLE SODIUM [Suspect]
     Active Substance: PANTOPRAZOLE SODIUM
  361. PANTOPRAZOLE SODIUM [Suspect]
     Active Substance: PANTOPRAZOLE SODIUM
  362. PANTOPRAZOLE SODIUM [Suspect]
     Active Substance: PANTOPRAZOLE SODIUM
  363. PANTOPRAZOLE SODIUM [Suspect]
     Active Substance: PANTOPRAZOLE SODIUM
  364. PANTOPRAZOLE SODIUM [Suspect]
     Active Substance: PANTOPRAZOLE SODIUM
  365. PANTOPRAZOLE SODIUM [Suspect]
     Active Substance: PANTOPRAZOLE SODIUM
  366. PANTOPRAZOLE SODIUM [Suspect]
     Active Substance: PANTOPRAZOLE SODIUM
  367. PANTOPRAZOLE SODIUM [Suspect]
     Active Substance: PANTOPRAZOLE SODIUM
  368. PANTOPRAZOLE SODIUM [Suspect]
     Active Substance: PANTOPRAZOLE SODIUM
  369. PANTOPRAZOLE SODIUM [Suspect]
     Active Substance: PANTOPRAZOLE SODIUM
  370. PANTOPRAZOLE SODIUM [Suspect]
     Active Substance: PANTOPRAZOLE SODIUM
  371. PANTOPRAZOLE SODIUM [Suspect]
     Active Substance: PANTOPRAZOLE SODIUM
  372. PANTOPRAZOLE SODIUM [Suspect]
     Active Substance: PANTOPRAZOLE SODIUM
  373. PREVNAR 13 [Suspect]
     Active Substance: STREPTOCOCCUS PNEUMONIAE TYPE 1 CAPSULAR POLYSACCHARIDE DIPHTHERIA CRM197 PROTEIN CONJUGATE ANTIGEN\
     Indication: Immunisation
  374. PREVNAR 13 [Suspect]
     Active Substance: STREPTOCOCCUS PNEUMONIAE TYPE 1 CAPSULAR POLYSACCHARIDE DIPHTHERIA CRM197 PROTEIN CONJUGATE ANTIGEN\
  375. ACETAMINOPHEN [Suspect]
     Active Substance: ACETAMINOPHEN
     Indication: Product used for unknown indication
  376. ACETAMINOPHEN [Suspect]
     Active Substance: ACETAMINOPHEN
  377. ACETAMINOPHEN [Suspect]
     Active Substance: ACETAMINOPHEN
  378. JUBLIA [Suspect]
     Active Substance: EFINACONAZOLE
     Indication: Product used for unknown indication
  379. JUBLIA [Suspect]
     Active Substance: EFINACONAZOLE
     Indication: Product used for unknown indication
  380. JUBLIA [Suspect]
     Active Substance: EFINACONAZOLE
  381. JUBLIA [Suspect]
     Active Substance: EFINACONAZOLE
  382. NUCALA [Suspect]
     Active Substance: MEPOLIZUMAB
     Indication: Asthma
  383. NUCALA [Suspect]
     Active Substance: MEPOLIZUMAB
     Indication: Asthma
  384. NUCALA [Suspect]
     Active Substance: MEPOLIZUMAB
  385. NUCALA [Suspect]
     Active Substance: MEPOLIZUMAB
  386. NUCALA [Suspect]
     Active Substance: MEPOLIZUMAB
  387. NUCALA [Suspect]
     Active Substance: MEPOLIZUMAB
  388. NUCALA [Suspect]
     Active Substance: MEPOLIZUMAB
  389. NUCALA [Suspect]
     Active Substance: MEPOLIZUMAB
  390. PNEUMOCOCCAL 7-VALENT CONJUGATE VACCINE (DIPHTHERIA CRM197 PROTEIN) [Suspect]
     Active Substance: PNEUMOCOCCAL 7-VALENT CONJUGATE VACCINE (DIPHTHERIA CRM197 PROTEIN)
     Indication: Immunisation
     Route: 065
  391. PNEUMOCOCCAL VACCINE POLYVALENT [Suspect]
     Active Substance: PNEUMOCOCCAL VACCINE POLYVALENT
     Indication: Product used for unknown indication
  392. IPRATROPIUM [Suspect]
     Active Substance: IPRATROPIUM
     Indication: Product used for unknown indication
  393. SENNOSIDES [Suspect]
     Active Substance: SENNOSIDES
     Indication: Asthma
  394. TRAZODONE HYDROCHLORIDE [Suspect]
     Active Substance: TRAZODONE HYDROCHLORIDE
  395. SENNA [Suspect]
     Active Substance: SENNOSIDES
  396. AZITHROMYCIN ANHYDROUS [Suspect]
     Active Substance: AZITHROMYCIN ANHYDROUS
     Indication: Product used for unknown indication
  397. PRAMIPEXOLE DIHYDROCHLORIDE [Suspect]
     Active Substance: PRAMIPEXOLE DIHYDROCHLORIDE
     Indication: Product used for unknown indication
  398. PREVACID [Suspect]
     Active Substance: LANSOPRAZOLE
     Indication: Product used for unknown indication
  399. INFLUENZA VIRUS VACCINE [Suspect]
     Active Substance: INFLUENZA VIRUS VACCINE
     Indication: Prophylaxis
  400. INFLUENZA VIRUS VACCINE [Suspect]
     Active Substance: INFLUENZA VIRUS VACCINE
  401. INFLUENZA VIRUS VACCINE [Suspect]
     Active Substance: INFLUENZA VIRUS VACCINE
  402. INFLUENZA VIRUS VACCINE [Suspect]
     Active Substance: INFLUENZA VIRUS VACCINE
  403. PULMICORT TURBUHALER [Suspect]
     Active Substance: BUDESONIDE
  404. PULMICORT TURBUHALER [Suspect]
     Active Substance: BUDESONIDE
  405. PULMICORT TURBUHALER [Suspect]
     Active Substance: BUDESONIDE
  406. BUDESONIDE\FORMOTEROL FUMARATE [Suspect]
     Active Substance: BUDESONIDE\FORMOTEROL FUMARATE
     Dosage: 4 DOSAGE FORM, QD
  407. BUDESONIDE\FORMOTEROL FUMARATE [Suspect]
     Active Substance: BUDESONIDE\FORMOTEROL FUMARATE
     Dosage: 2 DOSAGE FORM, BID
  408. BUDESONIDE\FORMOTEROL FUMARATE [Suspect]
     Active Substance: BUDESONIDE\FORMOTEROL FUMARATE
     Dosage: 2 DOSAGE FORM, BID
  409. BUDESONIDE\FORMOTEROL FUMARATE [Suspect]
     Active Substance: BUDESONIDE\FORMOTEROL FUMARATE
  410. BUDESONIDE\FORMOTEROL FUMARATE [Suspect]
     Active Substance: BUDESONIDE\FORMOTEROL FUMARATE
     Dosage: 1 DOSAGE FORM, QD
  411. BUDESONIDE\FORMOTEROL FUMARATE [Suspect]
     Active Substance: BUDESONIDE\FORMOTEROL FUMARATE
     Dosage: 1 DOSAGE FORM, Q12H
  412. SENNOSIDES A AND B [Suspect]
     Active Substance: SENNOSIDES A AND B
     Indication: Product used for unknown indication
  413. SENNOSIDES A AND B [Suspect]
     Active Substance: SENNOSIDES A AND B
  414. SENNOSIDES A AND B [Suspect]
     Active Substance: SENNOSIDES A AND B
  415. IMOVANE [Suspect]
     Active Substance: ZOPICLONE
     Indication: Product used for unknown indication
  416. IMOVANE [Suspect]
     Active Substance: ZOPICLONE
  417. ALBUTEROL SULFATE\IPRATROPIUM BROMIDE [Suspect]
     Active Substance: ALBUTEROL SULFATE\IPRATROPIUM BROMIDE
     Indication: Product used for unknown indication

REACTIONS (49)
  - Abdominal pain upper [Unknown]
  - Anaemia [Unknown]
  - Aspiration [Not Recovered/Not Resolved]
  - Asthenia [Not Recovered/Not Resolved]
  - Asthma [Not Recovered/Not Resolved]
  - Blood calcium increased [Not Recovered/Not Resolved]
  - Blood creatinine increased [Not Recovered/Not Resolved]
  - Blood test abnormal [Not Recovered/Not Resolved]
  - Bronchiectasis [Not Recovered/Not Resolved]
  - Bronchopulmonary aspergillosis allergic [Unknown]
  - Constipation [Not Recovered/Not Resolved]
  - Cough [Not Recovered/Not Resolved]
  - Drug hypersensitivity [Not Recovered/Not Resolved]
  - Drug ineffective [Unknown]
  - Dyspnoea [Not Recovered/Not Resolved]
  - Fatigue [Not Recovered/Not Resolved]
  - Gastrooesophageal reflux disease [Not Recovered/Not Resolved]
  - General physical health deterioration [Not Recovered/Not Resolved]
  - Haemoptysis [Not Recovered/Not Resolved]
  - Headache [Not Recovered/Not Resolved]
  - Hypoxia [Not Recovered/Not Resolved]
  - Liver function test increased [Not Recovered/Not Resolved]
  - Lower respiratory tract infection [Not Recovered/Not Resolved]
  - Lung opacity [Not Recovered/Not Resolved]
  - Musculoskeletal stiffness [Not Recovered/Not Resolved]
  - Obstructive airways disorder [Not Recovered/Not Resolved]
  - Oedema peripheral [Unknown]
  - Pain [Not Recovered/Not Resolved]
  - Pleural effusion [Not Recovered/Not Resolved]
  - Pleuritic pain [Not Recovered/Not Resolved]
  - Pneumonia [Not Recovered/Not Resolved]
  - Product dose omission issue [Not Recovered/Not Resolved]
  - Pulmonary fibrosis [Not Recovered/Not Resolved]
  - Pulmonary mass [Not Recovered/Not Resolved]
  - Pyrexia [Unknown]
  - Rales [Not Recovered/Not Resolved]
  - Sputum discoloured [Not Recovered/Not Resolved]
  - Total lung capacity decreased [Not Recovered/Not Resolved]
  - Transaminases increased [Not Recovered/Not Resolved]
  - Tremor [Not Recovered/Not Resolved]
  - Upper respiratory tract infection [Unknown]
  - Wheezing [Not Recovered/Not Resolved]
  - Bronchopulmonary aspergillosis allergic [Not Recovered/Not Resolved]
  - Abdominal pain upper [Not Recovered/Not Resolved]
  - Anaemia [Not Recovered/Not Resolved]
  - Upper respiratory tract infection [Not Recovered/Not Resolved]
  - Oedema peripheral [Not Recovered/Not Resolved]
  - Pyrexia [Not Recovered/Not Resolved]
  - Drug ineffective [Not Recovered/Not Resolved]
